FAERS Safety Report 13795259 (Version 2)
Quarter: 2017Q3

REPORT INFORMATION
  Report Type: Not Available
  Country: US (occurrence: US)
  Receive Date: 20170726
  Receipt Date: 20170920
  Transmission Date: 20171127
  Serious: No
  Sender: FDA-Public Use
  Company Number: US-NEUROCRINE BIOSCIENCES INC.-2017NBI00264

PATIENT
  Age: 38 Year
  Sex: Female
  Weight: 86.26 kg

DRUGS (18)
  1. ATIVAN [Concomitant]
     Active Substance: LORAZEPAM
     Dosage: EVERY 3 HOURS STARTING AT 9AM
  2. MIRTAZEPINE [Concomitant]
     Active Substance: MIRTAZAPINE
  3. BOTOX [Concomitant]
     Active Substance: ONABOTULINUMTOXINA
  4. HYDROCODONE [Concomitant]
     Active Substance: HYDROCODONE
  5. XTAMPZA [Concomitant]
     Active Substance: OXYCODONE
     Dosage: MORNING AND NIGHT
  6. HYDROCODONE BITARTRATE AND ACETAMINOPHEN [Concomitant]
     Active Substance: ACETAMINOPHEN\HYDROCODONE BITARTRATE
     Dosage: 10/325 MG AT NOON AND 3 PM
  7. SENNA [Concomitant]
     Active Substance: SENNA LEAF\SENNOSIDES\SENNOSIDES A AND B
     Dosage: 2 PILLS QA
  8. XTAMPZA [Concomitant]
     Active Substance: OXYCODONE
     Dosage: AT NIGHT FOR ABOUT 3-4 WEEKS
  9. VALIUM [Concomitant]
     Active Substance: DIAZEPAM
     Dosage: MIDDLE OF THE DAY
  10. INGREZZA [Suspect]
     Active Substance: VALBENAZINE
     Route: 048
     Dates: start: 201705
  11. TIZANIDINE. [Concomitant]
     Active Substance: TIZANIDINE
     Indication: MUSCLE RELAXANT THERAPY
     Dosage: MORNING
  12. LITHIUM. [Concomitant]
     Active Substance: LITHIUM
     Dosage: MORNING AND NIGHT
  13. INGREZZA [Suspect]
     Active Substance: VALBENAZINE
     Indication: TARDIVE DYSKINESIA
     Route: 048
     Dates: start: 20170509, end: 201705
  14. HYDROCODONE [Concomitant]
     Active Substance: HYDROCODONE
  15. LITHIUM. [Concomitant]
     Active Substance: LITHIUM
  16. ATIVAN [Concomitant]
     Active Substance: LORAZEPAM
  17. MIRTAZEPINE [Concomitant]
     Active Substance: MIRTAZAPINE
     Dosage: 2 PILLS AT BEDTIME
  18. BENADRYL [Concomitant]
     Active Substance: DIPHENHYDRAMINE HYDROCHLORIDE
     Dosage: 25 MG AT 3 PM AND 50 MG AT BEDTIME DAILY

REACTIONS (13)
  - Balance disorder [Not Recovered/Not Resolved]
  - Dizziness [Unknown]
  - Fatigue [Not Recovered/Not Resolved]
  - Fall [Not Recovered/Not Resolved]
  - Heart rate increased [Unknown]
  - Somnolence [Not Recovered/Not Resolved]
  - Dry mouth [Not Recovered/Not Resolved]
  - Excessive eye blinking [Unknown]
  - Blepharospasm [Not Recovered/Not Resolved]
  - Hyperhidrosis [Unknown]
  - Dyspnoea [Unknown]
  - Headache [Unknown]
  - Drug effect incomplete [Not Recovered/Not Resolved]

NARRATIVE: CASE EVENT DATE: 201705
